FAERS Safety Report 10069773 (Version 1)
Quarter: 2014Q2

REPORT INFORMATION
  Report Type: Spontaneous
  Country: US (occurrence: US)
  Receive Date: 20140410
  Receipt Date: 20140410
  Transmission Date: 20141212
  Serious: No
  Sender: FDA-Public Use
  Company Number: US-PFIZER INC-2014095840

PATIENT
  Age: 72 Year
  Sex: Female

DRUGS (1)
  1. NEURONTIN [Suspect]
     Indication: NEURALGIA
     Dosage: UNK

REACTIONS (3)
  - Tremor [Recovered/Resolved]
  - Gait disturbance [Unknown]
  - Balance disorder [Unknown]
